FAERS Safety Report 7475108-7 (Version None)
Quarter: 2011Q2

REPORT INFORMATION
  Report Type: 
  Country: None (occurrence: None)
  Receive Date: 20110509
  Receipt Date: 20110509
  Transmission Date: 20111010
  Serious: Yes (Other)
  Sender: FDA-Public Use
  Company Number: None

PATIENT
  Sex: Male
  Weight: 72.5755 kg

DRUGS (1)
  1. LEXAPRO [Suspect]
     Indication: PERSONALITY DISORDER
     Dosage: ONE PER DAY PO 2 OR 3 WEEKS TWICE
     Route: 048

REACTIONS (7)
  - MUSCLE TWITCHING [None]
  - SERUM SEROTONIN INCREASED [None]
  - BRAIN INJURY [None]
  - TREMOR [None]
  - FATIGUE [None]
  - DISTURBANCE IN ATTENTION [None]
  - EUPHORIC MOOD [None]
